FAERS Safety Report 5560911-0 (Version None)
Quarter: 2007Q4

REPORT INFORMATION
  Report Type: 
  Country: None (occurrence: None)
  Receive Date: 20071215
  Receipt Date: 20071124
  Transmission Date: 20080405
  Serious: No
  Sender: FDA-Public Use
  Company Number: US-ABBOTT-07P-163-0426686-00

PATIENT
  Sex: Female
  Weight: 104.3 kg

DRUGS (10)
  1. HUMIRA [Suspect]
     Indication: RHEUMATOID ARTHRITIS
     Route: 058
     Dates: start: 20040101
  2. METHOTREXATE [Concomitant]
     Indication: ARTHRITIS
     Route: 048
  3. CELECOXIB [Concomitant]
     Indication: ARTHRITIS
     Route: 048
  4. METFORMIN HCL [Concomitant]
     Indication: DIABETES MELLITUS
     Route: 048
  5. JANUVIA [Concomitant]
     Indication: DIABETES MELLITUS
     Route: 048
  6. PANTOPRAZOLE SODIUM [Concomitant]
     Indication: GASTRIC DISORDER
     Route: 048
  7. FOLAMIN [Concomitant]
     Indication: DIABETES MELLITUS
     Route: 048
  8. FOLAMIN [Concomitant]
     Indication: PROPHYLAXIS
  9. FOLAMIN [Concomitant]
     Indication: CARDIAC DISORDER
  10. LOSARTAN POTASSIUM [Concomitant]
     Indication: BLOOD PRESSURE
     Route: 048

REACTIONS (3)
  - INFLAMMATION [None]
  - MUSCULOSKELETAL STIFFNESS [None]
  - OEDEMA PERIPHERAL [None]
